FAERS Safety Report 20597318 (Version 1)
Quarter: 2022Q1

REPORT INFORMATION
  Report Type: Spontaneous
  Country: US (occurrence: None)
  Receive Date: 20220315
  Receipt Date: 20220315
  Transmission Date: 20220424
  Serious: Yes (Other)
  Sender: FDA-Public Use
  Company Number: None

PATIENT
  Age: 71 Year
  Sex: Female
  Weight: 65.25 kg

DRUGS (1)
  1. ABILIFY [Suspect]
     Active Substance: ARIPIPRAZOLE
     Indication: Depression
     Dosage: FREQUENCY : AT BEDTIME;?OTHER ROUTE : ORAL PILL;?
     Route: 050

REACTIONS (6)
  - Tardive dyskinesia [None]
  - Dental caries [None]
  - Tongue thrust [None]
  - Bruxism [None]
  - Speech disorder [None]
  - Emotional distress [None]
